FAERS Safety Report 7386069-3 (Version None)
Quarter: 2011Q1

REPORT INFORMATION
  Report Type: 
  Country: None (occurrence: None)
  Receive Date: 20110331
  Receipt Date: 20110323
  Transmission Date: 20110831
  Serious: Yes (Other)
  Sender: FDA-Public Use
  Company Number: DE-SANOFI-AVENTIS-2011SA017431

PATIENT
  Age: 82 Year
  Sex: Female

DRUGS (3)
  1. TRENTAL [Suspect]
  2. ANTITHROMBOTIC AGENTS [Concomitant]
  3. TRENTAL [Suspect]

REACTIONS (2)
  - OFF LABEL USE [None]
  - ILL-DEFINED DISORDER [None]
